FAERS Safety Report 4660731-5 (Version None)
Quarter: 2005Q2

REPORT INFORMATION
  Report Type: 
  Country: None (occurrence: None)
  Receive Date: 20050511
  Receipt Date: 20050427
  Transmission Date: 20051028
  Serious: Yes (Hospitalization)
  Sender: FDA-Public Use
  Company Number: 199570

PATIENT
  Age: 70 Year
  Sex: Female

DRUGS (1)
  1. AVONEX [Suspect]
     Indication: MULTIPLE SCLEROSIS
     Dosage: 30 UG;QW;IM
     Route: 030
     Dates: start: 20040329

REACTIONS (5)
  - BASEDOW'S DISEASE [None]
  - COMA [None]
  - HYPERTHYROIDISM [None]
  - LOSS OF CONSCIOUSNESS [None]
  - MENTAL DISORDER [None]
